FAERS Safety Report 7447457-X (Version None)
Quarter: 2011Q2

REPORT INFORMATION
  Report Type: 
  Country: None (occurrence: None)
  Receive Date: 20110421
  Receipt Date: 20110411
  Transmission Date: 20111010
  Serious: Yes (Other)
  Sender: FDA-Public Use
  Company Number: 1000020137

PATIENT
  Age: 73 Year
  Sex: Female

DRUGS (6)
  1. BUDESONIDE [Concomitant]
  2. ACIMETHIN (METHIONINE)(METHIONINE) [Concomitant]
  3. FOSFOMYCIN (FOSFOMYCIN TROMETAMOL) (POWDER) [Suspect]
     Indication: URINARY TRACT INFECTION
     Dosage: DOSAGE FORM (1 DOSAGE FORMS, 1 IN 1 D),ORAL
     Route: 048
     Dates: start: 20110101, end: 20110101
  4. SPIRIVA (TIOTROPIUM BROMIDE)(TIOTROPIUM BROMIDE) [Concomitant]
  5. BELOC (METOPROLOL TARTRATE) (METOPROLOL TARTRATE) [Concomitant]
  6. ACE-HEMMER (CAPTOPRIL)(CAPTOPRIL) [Concomitant]

REACTIONS (3)
  - OFF LABEL USE [None]
  - DERMATITIS ALLERGIC [None]
  - URINARY TRACT INFECTION [None]
